FAERS Safety Report 11983728 (Version 1)
Quarter: 2016Q1

REPORT INFORMATION
  Report Type: Spontaneous
  Country: US (occurrence: US)
  Receive Date: 20160201
  Receipt Date: 20160201
  Transmission Date: 20160526
  Serious: No
  Sender: FDA-Public Use
  Company Number: US-JNJFOC-20151219657

PATIENT
  Age: 56 Year
  Sex: Female
  Weight: 70.31 kg

DRUGS (3)
  1. ANTIHYPERTENSIVES [Concomitant]
     Active Substance: UNSPECIFIED INGREDIENT
     Indication: HYPERTENSION
     Route: 065
  2. VISINE A [Suspect]
     Active Substance: NAPHAZOLINE HYDROCHLORIDE\PHENIRAMINE MALEATE
     Indication: DRY EYE
     Dosage: 1-2 DROPS PER EYE, ONCE
     Route: 047
     Dates: start: 20151120, end: 20151120
  3. VISINE A [Suspect]
     Active Substance: NAPHAZOLINE HYDROCHLORIDE\PHENIRAMINE MALEATE
     Route: 047

REACTIONS (2)
  - Eye irritation [Recovering/Resolving]
  - Expired product administered [Recovering/Resolving]

NARRATIVE: CASE EVENT DATE: 20151120
